FAERS Safety Report 17707211 (Version 1)
Quarter: 2020Q2

REPORT INFORMATION
  Report Type: Other
  Country: CA (occurrence: CA)
  Receive Date: 20200424
  Receipt Date: 20200424
  Transmission Date: 20200714
  Serious: Yes (Other)
  Sender: FDA-Public Use
  Company Number: CA-TARO-2020TAR00802

PATIENT
  Sex: Female
  Weight: 72 kg

DRUGS (6)
  1. BETADERM [Suspect]
     Active Substance: BETAMETHASONE VALERATE
     Indication: PRODUCT USED FOR UNKNOWN INDICATION
     Dosage: UNK
     Route: 065
  2. CANNABIDOL [Suspect]
     Active Substance: CANNABIDIOL
     Indication: BACK PAIN
  3. NAPROXEN SODIUM. [Suspect]
     Active Substance: NAPROXEN SODIUM
     Indication: DACTYLITIS
     Dosage: 220 MILLIGRAM
     Route: 065
  4. PREDNISONE. [Concomitant]
     Active Substance: PREDNISONE
     Indication: URTICARIA
     Dosage: 50 MILLIGRAM, QD (1 EVERY 1 DAY)
     Route: 048
  5. CANNABIDOL [Suspect]
     Active Substance: CANNABIDIOL
     Indication: FIBROMYALGIA
     Dosage: 0.7 MILLIGRAM, UNK
     Route: 065
  6. COSENTYX [Suspect]
     Active Substance: SECUKINUMAB
     Indication: PSORIASIS
     Dosage: 300 MILLIGRAM, 1/WEEK (1 EVERY 1 WEEK)
     Route: 065

REACTIONS (4)
  - Rash [Recovered/Resolved]
  - Urticaria [Recovered/Resolved]
  - Drug hypersensitivity [Recovered/Resolved]
  - Swollen tongue [Recovered/Resolved]
